FAERS Safety Report 6265598-X (Version None)
Quarter: 2009Q3

REPORT INFORMATION
  Report Type: 
  Country: None (occurrence: None)
  Receive Date: 20090709
  Receipt Date: 20090709
  Transmission Date: 20100115
  Serious: Yes (Life-Threatening)
  Sender: FDA-Public Use
  Company Number: None

PATIENT
  Age: 49 Year
  Sex: Female
  Weight: 185 kg

DRUGS (2)
  1. DIFLUCAN [Suspect]
     Indication: CANDIDIASIS
     Dosage: PO
     Route: 048
     Dates: start: 20090620, end: 20090624
  2. LEVAQUIN [Suspect]
     Indication: URINARY TRACT INFECTION
     Dosage: PO
     Route: 048
     Dates: start: 20090622, end: 20090624

REACTIONS (3)
  - BLISTER [None]
  - PHOTOSENSITIVITY REACTION [None]
  - PRURITUS [None]
